FAERS Safety Report 9550627 (Version 1)
Quarter: 2013Q3

REPORT INFORMATION
  Report Type: Spontaneous
  Country: US (occurrence: US)
  Receive Date: 20130924
  Receipt Date: 20130924
  Transmission Date: 20140515
  Serious: No
  Sender: FDA-Public Use
  Company Number: US-SANOFI-AVENTIS-2013SA008306

PATIENT
  Age: 58 Year
  Sex: Male
  Weight: 77 kg

DRUGS (8)
  1. AUBAGIO [Suspect]
     Indication: MULTIPLE SCLEROSIS
     Route: 048
     Dates: start: 20130206, end: 20130620
  2. CYANOCOBALAMIN [Concomitant]
     Indication: VITAMIN B12 DECREASED
  3. IRON [Concomitant]
     Indication: BLOOD IRON DECREASED
     Dosage: 4 TABLETS DAILY
  4. VITAMIN D [Concomitant]
     Indication: VITAMIN D DECREASED
     Dosage: DOSE:1000 UNIT(S)
  5. ALPRAZOLAM [Concomitant]
  6. ASPIRIN [Concomitant]
  7. OMEPRAZOLE [Concomitant]
  8. PAXOETINE [Concomitant]

REACTIONS (4)
  - Diarrhoea [Recovered/Resolved]
  - Hepatic enzyme abnormal [Not Recovered/Not Resolved]
  - Alanine aminotransferase increased [Unknown]
  - Blood alkaline phosphatase increased [Unknown]
